FAERS Safety Report 5023836-5 (Version None)
Quarter: 2006Q2

REPORT INFORMATION
  Report Type: 
  Country: None (occurrence: None)
  Receive Date: 20060606
  Receipt Date: 20060530
  Transmission Date: 20061013
  Serious: Yes (Death, Hospitalization)
  Sender: FDA-Public Use
  Company Number: FRWYE923722AUG05

PATIENT
  Age: 38 Year
  Sex: Male

DRUGS (8)
  1. GEMTUZUMAB OZOGAMICIN [Suspect]
     Indication: MYELOID LEUKAEMIA
     Dosage: 5 MG 1X PER 1 DAY INTRAVENOUS; SEE IMAGE
     Route: 042
     Dates: start: 20050819, end: 20050819
  2. GEMTUZUMAB OZOGAMICIN [Suspect]
     Indication: MYELOID LEUKAEMIA
     Dosage: 5 MG 1X PER 1 DAY INTRAVENOUS; SEE IMAGE
     Route: 042
     Dates: start: 20050822, end: 20050822
  3. GEMTUZUMAB OZOGAMICIN [Suspect]
     Indication: MYELOID LEUKAEMIA
     Dosage: 5 MG 1X PER 1 DAY INTRAVENOUS; SEE IMAGE
     Route: 042
     Dates: start: 20050825, end: 20050825
  4. HYDREA [Concomitant]
  5. FLUCONAZOLE [Concomitant]
  6. FANSIDAR [Concomitant]
  7. ZOVIRAX [Concomitant]
  8. BACTRIM [Concomitant]

REACTIONS (14)
  - BLAST CELLS PRESENT [None]
  - DISEASE PROGRESSION [None]
  - DRUG INEFFECTIVE [None]
  - HAEMOGLOBIN DECREASED [None]
  - INTERSTITIAL LUNG DISEASE [None]
  - LEUKOCYTOSIS [None]
  - LEUKOSTASIS [None]
  - MALIGNANT NEOPLASM PROGRESSION [None]
  - MYELOID LEUKAEMIA [None]
  - PERICARDIAL EFFUSION [None]
  - PLATELET COUNT DECREASED [None]
  - PLEURAL EFFUSION [None]
  - RESPIRATORY DISTRESS [None]
  - VIRAL PERICARDITIS [None]
